FAERS Safety Report 5329853-X (Version None)
Quarter: 2007Q2

REPORT INFORMATION
  Report Type: 
  Country: None (occurrence: None)
  Receive Date: 20070517
  Receipt Date: 20070517
  Transmission Date: 20071010
  Serious: Yes (Other)
  Sender: FDA-Public Use
  Company Number: None

PATIENT
  Sex: Male
  Weight: 63.5036 kg

DRUGS (2)
  1. APO-OXYBUTYNIN  - APOTEX INC. [Suspect]
     Indication: MEDICATION ERROR
     Dosage: 5 MG ONCE ORAL
     Route: 048
     Dates: start: 20070424
  2. DIPHENHYDRAMINE -EQUATE [Suspect]
     Dosage: 50 MG
     Route: 048

REACTIONS (10)
  - ACCIDENTAL EXPOSURE [None]
  - CONFUSIONAL STATE [None]
  - DISORIENTATION [None]
  - DIZZINESS [None]
  - HALLUCINATION, VISUAL [None]
  - HYPERVENTILATION [None]
  - MALAISE [None]
  - POOR QUALITY SLEEP [None]
  - SELF-MEDICATION [None]
  - WRONG DRUG ADMINISTERED [None]
